FAERS Safety Report 5841777-8 (Version None)
Quarter: 2008Q3

REPORT INFORMATION
  Report Type: 
  Country: None (occurrence: None)
  Receive Date: 20080812
  Receipt Date: 20080805
  Transmission Date: 20090109
  Serious: Yes (Hospitalization)
  Sender: FDA-Public Use
  Company Number: IL-ABBOTT-08P-082-0469102-00

PATIENT
  Age: 10 Year
  Sex: Male

DRUGS (2)
  1. HUMIRA [Suspect]
     Indication: CROHN'S DISEASE
     Route: 058
     Dates: start: 20080714, end: 20080714
  2. HUMIRA [Suspect]
     Route: 058
     Dates: start: 20080728

REACTIONS (1)
  - KERATITIS [None]
